FAERS Safety Report 8313678-7 (Version None)
Quarter: 2012Q2

REPORT INFORMATION
  Report Type: 
  Country: None (occurrence: None)
  Receive Date: 20120426
  Receipt Date: 20120420
  Transmission Date: 20120825
  Serious: Yes (Life-Threatening, Hospitalization, Disabling)
  Sender: FDA-Public Use
  Company Number: US-ELI_LILLY_AND_COMPANY-US201204004462

PATIENT
  Sex: Male

DRUGS (6)
  1. PRASUGREL HYDROCHLORIDE [Suspect]
     Dosage: 10 MG, QD
     Dates: start: 20120325, end: 20120404
  2. LISINOPRIL [Concomitant]
     Dosage: 2.5 MG, QD
  3. ASPIRIN [Concomitant]
     Dosage: 325 MG, QD
  4. METOPROLOL TARTRATE [Concomitant]
     Dosage: 25 MG, BID
  5. ATROVENT [Concomitant]
     Dosage: 2 DF, BID
  6. LIPITOR [Concomitant]
     Dosage: 20 MG, QD

REACTIONS (1)
  - ISCHAEMIC STROKE [None]
